FAERS Safety Report 5098033-8 (Version None)
Quarter: 2006Q3

REPORT INFORMATION
  Report Type: 
  Country: None (occurrence: None)
  Receive Date: 20060906
  Receipt Date: 20060829
  Transmission Date: 20061208
  Serious: Yes (Hospitalization)
  Sender: FDA-Public Use
  Company Number: DE-AVENTIS-200612557DE

PATIENT
  Age: 74 Year
  Sex: Male
  Weight: 83.5 kg

DRUGS (9)
  1. LEVOFLOXACIN [Suspect]
     Indication: PROPHYLAXIS
     Dosage: UNBROKEN CODE
     Route: 048
     Dates: start: 20060820, end: 20060827
  2. DOCETAXEL [Suspect]
     Indication: NON-SMALL CELL LUNG CANCER
     Route: 042
     Dates: start: 20060815, end: 20060815
  3. CARBOPLATIN [Suspect]
     Indication: NON-SMALL CELL LUNG CANCER
     Route: 042
     Dates: start: 20060815, end: 20060815
  4. TORSEMIDE [Concomitant]
     Indication: HYPERTENSION
     Route: 048
  5. CAPTOHEXAL [Concomitant]
     Indication: HYPERTENSION
     Route: 048
  6. CODEIN [Concomitant]
     Indication: CHRONIC OBSTRUCTIVE PULMONARY DISEASE
     Route: 048
  7. FERRO /OLD FORM/ ^SANOL^ [Concomitant]
     Route: 048
  8. SPIRIVA [Concomitant]
     Indication: CHRONIC OBSTRUCTIVE PULMONARY DISEASE
     Route: 055
  9. BERODUAL [Concomitant]
     Indication: CHRONIC OBSTRUCTIVE PULMONARY DISEASE

REACTIONS (5)
  - ANAEMIA [None]
  - CANDIDIASIS [None]
  - HYPOKALAEMIA [None]
  - LEUKOPENIA [None]
  - THROMBOCYTOPENIA [None]
